FAERS Safety Report 5032525-2 (Version None)
Quarter: 2006Q2

REPORT INFORMATION
  Report Type: 
  Country: None (occurrence: None)
  Receive Date: 20060621
  Receipt Date: 20060621
  Transmission Date: 20061013
  Serious: Yes (Hospitalization)
  Sender: FDA-Public Use
  Company Number: None

PATIENT
  Sex: Male
  Weight: 65 kg

DRUGS (2)
  1. CYTARABINE [Suspect]
     Dosage: 21940 MG
     Dates: start: 20060603
  2. DAUNORUBICIN HCL [Suspect]
     Dosage: 645 MG
     Dates: start: 20060407

REACTIONS (8)
  - ABDOMINAL PAIN [None]
  - ERYTHEMA [None]
  - MUCOUS MEMBRANE DISORDER [None]
  - PANCYTOPENIA [None]
  - PETECHIAE [None]
  - PLEURAL EFFUSION [None]
  - PYREXIA [None]
  - TROPONIN I INCREASED [None]
